FAERS Safety Report 9405468 (Version 2)
Quarter: 2013Q4

REPORT INFORMATION
  Report Type: Report from Study
  Country: IT (occurrence: IT)
  Receive Date: 20130717
  Receipt Date: 20131008
  Transmission Date: 20140711
  Serious: Yes (Hospitalization)
  Sender: FDA-Public Use
  Company Number: IT-BRISTOL-MYERS SQUIBB COMPANY-19098110

PATIENT
  Age: 37 Year
  Sex: Female

DRUGS (4)
  1. REYATAZ [Suspect]
     Indication: HIV INFECTION
     Dosage: INTERRUPTED ON 28-JUN-2013
     Route: 048
     Dates: start: 20110921
  2. TRUVADA [Suspect]
     Indication: HIV INFECTION
     Dosage: DF:200/245MG,INTERRUPTED ON 28-JUN-2013.
     Route: 048
     Dates: start: 20110404
  3. NORVIR [Suspect]
     Indication: HIV INFECTION
     Dosage: INTERRUPTED ON 28-JUN-2013
     Route: 048
     Dates: start: 20110921
  4. DIBASE [Concomitant]
     Dates: start: 20120704

REACTIONS (1)
  - Nephrolithiasis [Not Recovered/Not Resolved]
